FAERS Safety Report 4947906-2 (Version None)
Quarter: 2006Q1

REPORT INFORMATION
  Report Type: 
  Country: None (occurrence: None)
  Receive Date: 20060314
  Receipt Date: 20060303
  Transmission Date: 20060701
  Serious: Yes (Other)
  Sender: FDA-Public Use
  Company Number: CIP06000556

PATIENT
  Age: 57 Year
  Sex: Female

DRUGS (3)
  1. RISEDRONATE SODIUM [Suspect]
     Indication: OSTEOPOROSIS
     Dosage: 2.5 MG DAILY ORAL
     Route: 048
     Dates: start: 20040101, end: 20060220
  2. PREDNISOLONE [Concomitant]
  3. NSAIDS [Concomitant]

REACTIONS (4)
  - DENTAL NECROSIS [None]
  - GINGIVAL SWELLING [None]
  - OSTEONECROSIS [None]
  - TOOTH ABSCESS [None]
